FAERS Safety Report 9962936 (Version 2)
Quarter: 2014Q1

REPORT INFORMATION
  Report Type: Spontaneous
  Country: JP (occurrence: JP)
  Receive Date: 20140305
  Receipt Date: 20140325
  Transmission Date: 20141002
  Serious: Yes (Other)
  Sender: FDA-Public Use
  Company Number: JP-TEVA-466249ISR

PATIENT
  Age: 50 Year
  Sex: Male

DRUGS (2)
  1. PLATOSIN [Suspect]
  2. TS1 [Concomitant]

REACTIONS (2)
  - Urinary retention [Unknown]
  - Abdominal pain lower [Unknown]
